FAERS Safety Report 8838363 (Version 1)
Quarter: 2012Q4

REPORT INFORMATION
  Report Type: 
  Country: IN (occurrence: IN)
  Receive Date: 20121012
  Receipt Date: 20121012
  Transmission Date: 20130627
  Serious: Yes (Hospitalization)
  Sender: FDA-Public Use
  Company Number: PHHY2012IN087988

PATIENT
  Age: 60 Year
  Sex: Male

DRUGS (4)
  1. CISPLATIN [Suspect]
     Indication: OESOPHAGEAL CARCINOMA
     Dates: start: 201006
  2. PACLITAXEL [Suspect]
     Indication: OESOPHAGEAL CARCINOMA
     Dates: start: 201006
  3. IFOSFAMIDE [Suspect]
     Indication: OESOPHAGEAL CARCINOMA
     Dates: start: 201006
  4. RADIOTHERAPY [Suspect]

REACTIONS (5)
  - Tracheo-oesophageal fistula [Recovered/Resolved]
  - Dysphagia [Recovered/Resolved]
  - Cough [Recovered/Resolved]
  - Dyspnoea [Recovered/Resolved]
  - Tracheal obstruction [Recovered/Resolved]
